FAERS Safety Report 6024525-0 (Version None)
Quarter: 2008Q4

REPORT INFORMATION
  Report Type: 
  Country: None (occurrence: None)
  Receive Date: 20081231
  Receipt Date: 20081001
  Transmission Date: 20090506
  Serious: Yes (Other)
  Sender: FDA-Public Use
  Company Number: US-BRISTOL-MYERS SQUIBB COMPANY-14354997

PATIENT
  Age: 67 Year
  Sex: Female

DRUGS (4)
  1. ORENCIA [Suspect]
     Dosage: DOSAGE FORM=3 TIMES
  2. ENBREL [Concomitant]
  3. METHOTREXATE [Concomitant]
  4. REMICADE [Concomitant]

REACTIONS (1)
  - NEOPLASM MALIGNANT [None]
